FAERS Safety Report 12918012 (Version 1)
Quarter: 2016Q4

REPORT INFORMATION
  Report Type: Spontaneous
  Country: US (occurrence: US)
  Receive Date: 20161107
  Receipt Date: 20161107
  Transmission Date: 20170207
  Serious: No
  Sender: FDA-Public Use
  Company Number: US-ALLERGAN-1653348US

PATIENT
  Sex: Female

DRUGS (1)
  1. RAPAFLO [Suspect]
     Active Substance: SILODOSIN
     Indication: RENAL STONE REMOVAL
     Dosage: UNK
     Dates: start: 2014

REACTIONS (2)
  - Off label use [Unknown]
  - Nephrolithiasis [Unknown]
